FAERS Safety Report 9204001 (Version 2)
Quarter: 2013Q2

REPORT INFORMATION
  Report Type: Report from Study
  Country: US (occurrence: US)
  Receive Date: 20130402
  Receipt Date: 20130523
  Transmission Date: 20140414
  Serious: Yes (Hospitalization)
  Sender: FDA-Public Use
  Company Number: PHHO2013US004614

PATIENT
  Age: 60 Year
  Sex: Female
  Weight: 106.12 kg

DRUGS (1)
  1. GILENYA [Suspect]
     Indication: RELAPSING-REMITTING MULTIPLE SCLEROSIS
     Dosage: DOSE BLINDED
     Route: 048
     Dates: start: 20130128

REACTIONS (3)
  - Angina pectoris [Unknown]
  - Pyrexia [Recovered/Resolved]
  - Arthralgia [Recovering/Resolving]
